FAERS Safety Report 19774826 (Version 3)
Quarter: 2025Q4

REPORT INFORMATION
  Report Type: Spontaneous
  Country: EU (occurrence: EU)
  Receive Date: 20210901
  Receipt Date: 20251103
  Transmission Date: 20260118
  Serious: Yes (Other)
  Sender: MYLAN
  Company Number: EU-TEVA-2021-AT-1892940

PATIENT
  Age: 49 Year
  Sex: Male

DRUGS (68)
  1. DEXAMETHASONE [Suspect]
     Active Substance: DEXAMETHASONE
     Indication: Immunosuppressant drug therapy
     Dosage: 20 MILLIGRAM
  2. DEXAMETHASONE [Suspect]
     Active Substance: DEXAMETHASONE
     Dosage: 20 MILLIGRAM
     Route: 065
  3. DEXAMETHASONE [Suspect]
     Active Substance: DEXAMETHASONE
     Dosage: 20 MILLIGRAM
     Route: 065
  4. DEXAMETHASONE [Suspect]
     Active Substance: DEXAMETHASONE
     Dosage: 20 MILLIGRAM
  5. ENVARSUS XR [Suspect]
     Active Substance: TACROLIMUS
     Indication: Immunosuppressant drug therapy
     Dosage: UNK (AT TARGETED TROUGH LEVEL 5-8 NG/ML)
  6. ENVARSUS XR [Suspect]
     Active Substance: TACROLIMUS
     Dosage: UNK (AT TARGETED TROUGH LEVEL 5-8 NG/ML)
     Route: 065
  7. ENVARSUS XR [Suspect]
     Active Substance: TACROLIMUS
     Dosage: UNK (AT TARGETED TROUGH LEVEL 5-8 NG/ML)
     Route: 065
  8. ENVARSUS XR [Suspect]
     Active Substance: TACROLIMUS
     Dosage: UNK (AT TARGETED TROUGH LEVEL 5-8 NG/ML)
  9. PREDNISOLONE [Suspect]
     Active Substance: PREDNISOLONE
     Indication: Immunosuppressant drug therapy
     Dosage: 5 MILLIGRAM, QD
  10. PREDNISOLONE [Suspect]
     Active Substance: PREDNISOLONE
     Dosage: 5 MILLIGRAM, QD
     Route: 065
  11. PREDNISOLONE [Suspect]
     Active Substance: PREDNISOLONE
     Dosage: 5 MILLIGRAM, QD
     Route: 065
  12. PREDNISOLONE [Suspect]
     Active Substance: PREDNISOLONE
     Dosage: 5 MILLIGRAM, QD
  13. MYCOPHENOLATE MOFETIL [Suspect]
     Active Substance: MYCOPHENOLATE MOFETIL
     Indication: Immunosuppressant drug therapy
     Dosage: 1440 MILLIGRAM, QD, ENTERIC-COATED
  14. MYCOPHENOLATE MOFETIL [Suspect]
     Active Substance: MYCOPHENOLATE MOFETIL
     Dosage: 1440 MILLIGRAM, QD, ENTERIC-COATED
     Route: 065
  15. MYCOPHENOLATE MOFETIL [Suspect]
     Active Substance: MYCOPHENOLATE MOFETIL
     Dosage: 1440 MILLIGRAM, QD, ENTERIC-COATED
     Route: 065
  16. MYCOPHENOLATE MOFETIL [Suspect]
     Active Substance: MYCOPHENOLATE MOFETIL
     Dosage: 1440 MILLIGRAM, QD, ENTERIC-COATED
  17. MYCOPHENOLATE MOFETIL [Suspect]
     Active Substance: MYCOPHENOLATE MOFETIL
     Dosage: UNK
  18. MYCOPHENOLATE MOFETIL [Suspect]
     Active Substance: MYCOPHENOLATE MOFETIL
     Dosage: UNK
     Route: 065
  19. MYCOPHENOLATE MOFETIL [Suspect]
     Active Substance: MYCOPHENOLATE MOFETIL
     Dosage: UNK
  20. MYCOPHENOLATE MOFETIL [Suspect]
     Active Substance: MYCOPHENOLATE MOFETIL
     Dosage: UNK
     Route: 065
  21. MYCOPHENOLATE MOFETIL [Suspect]
     Active Substance: MYCOPHENOLATE MOFETIL
     Dosage: 360 MILLIGRAM, QD (360 MILLIGRAM, QD 7 MONTHS AFTER DIAGNOSIS OF REJECTION BECAUSE OF DIARRHEA)
     Route: 065
  22. MYCOPHENOLATE MOFETIL [Suspect]
     Active Substance: MYCOPHENOLATE MOFETIL
     Dosage: 360 MILLIGRAM, QD (360 MILLIGRAM, QD 7 MONTHS AFTER DIAGNOSIS OF REJECTION BECAUSE OF DIARRHEA)
     Route: 065
  23. MYCOPHENOLATE MOFETIL [Suspect]
     Active Substance: MYCOPHENOLATE MOFETIL
     Dosage: 360 MILLIGRAM, QD (360 MILLIGRAM, QD 7 MONTHS AFTER DIAGNOSIS OF REJECTION BECAUSE OF DIARRHEA)
  24. MYCOPHENOLATE MOFETIL [Suspect]
     Active Substance: MYCOPHENOLATE MOFETIL
     Dosage: 360 MILLIGRAM, QD (360 MILLIGRAM, QD 7 MONTHS AFTER DIAGNOSIS OF REJECTION BECAUSE OF DIARRHEA)
  25. SIROLIMUS [Suspect]
     Active Substance: SIROLIMUS
     Indication: Immunosuppressant drug therapy
     Dosage: UNK
  26. SIROLIMUS [Suspect]
     Active Substance: SIROLIMUS
     Dosage: UNK
     Route: 065
  27. SIROLIMUS [Suspect]
     Active Substance: SIROLIMUS
     Dosage: UNK
     Route: 065
  28. SIROLIMUS [Suspect]
     Active Substance: SIROLIMUS
     Dosage: UNK
  29. BASILIXIMAB [Suspect]
     Active Substance: BASILIXIMAB
     Indication: Immunosuppressant drug therapy
     Dosage: UNK (INDUCTION THERAPY)
  30. BASILIXIMAB [Suspect]
     Active Substance: BASILIXIMAB
     Dosage: UNK (INDUCTION THERAPY)
     Route: 065
  31. BASILIXIMAB [Suspect]
     Active Substance: BASILIXIMAB
     Dosage: UNK (INDUCTION THERAPY)
     Route: 065
  32. BASILIXIMAB [Suspect]
     Active Substance: BASILIXIMAB
     Dosage: UNK (INDUCTION THERAPY)
  33. DARATUMUMAB [Suspect]
     Active Substance: DARATUMUMAB
     Indication: Plasma cell myeloma
     Dosage: DOSAGE TEXT: UNK, DURATION: 9 MONTHS
  34. DARATUMUMAB [Suspect]
     Active Substance: DARATUMUMAB
     Indication: Transplant rejection
     Dosage: DOSAGE TEXT: UNK, DURATION: 9 MONTHS
     Route: 065
  35. DARATUMUMAB [Suspect]
     Active Substance: DARATUMUMAB
     Dosage: DOSAGE TEXT: UNK, DURATION: 9 MONTHS
     Route: 065
  36. DARATUMUMAB [Suspect]
     Active Substance: DARATUMUMAB
     Dosage: DOSAGE TEXT: UNK, DURATION: 9 MONTHS
  37. DARATUMUMAB [Suspect]
     Active Substance: DARATUMUMAB
     Indication: Transplant rejection
     Dosage: 16 MILLIGRAM/KILOGRAM, CYCLE (WEEKLY FOR 8 WEEKS FOR CYCLES 1 AND 2, EVERY OTHER WEEK)
     Dates: start: 201806
  38. DARATUMUMAB [Suspect]
     Active Substance: DARATUMUMAB
     Dosage: 16 MILLIGRAM/KILOGRAM, CYCLE (WEEKLY FOR 8 WEEKS FOR CYCLES 1 AND 2, EVERY OTHER WEEK)
     Route: 042
     Dates: start: 201806
  39. DARATUMUMAB [Suspect]
     Active Substance: DARATUMUMAB
     Dosage: 16 MILLIGRAM/KILOGRAM, CYCLE (WEEKLY FOR 8 WEEKS FOR CYCLES 1 AND 2, EVERY OTHER WEEK)
     Route: 042
     Dates: start: 201806
  40. DARATUMUMAB [Suspect]
     Active Substance: DARATUMUMAB
     Dosage: 16 MILLIGRAM/KILOGRAM, CYCLE (WEEKLY FOR 8 WEEKS FOR CYCLES 1 AND 2, EVERY OTHER WEEK)
     Dates: start: 201806
  41. DIPHENHYDRAMINE [Concomitant]
     Active Substance: DIPHENHYDRAMINE
     Indication: Premedication
     Dosage: UNK
  42. DIPHENHYDRAMINE [Concomitant]
     Active Substance: DIPHENHYDRAMINE
     Dosage: UNK
     Route: 065
  43. DIPHENHYDRAMINE [Concomitant]
     Active Substance: DIPHENHYDRAMINE
     Dosage: UNK
     Route: 065
  44. DIPHENHYDRAMINE [Concomitant]
     Active Substance: DIPHENHYDRAMINE
     Dosage: UNK
  45. CANDESARTAN [Concomitant]
     Active Substance: CANDESARTAN
     Indication: Hypertension
     Dosage: UNK
     Route: 065
  46. CANDESARTAN [Concomitant]
     Active Substance: CANDESARTAN
     Dosage: UNK
  47. CANDESARTAN [Concomitant]
     Active Substance: CANDESARTAN
     Dosage: UNK
  48. CANDESARTAN [Concomitant]
     Active Substance: CANDESARTAN
     Dosage: UNK
     Route: 065
  49. CANDESARTAN [Concomitant]
     Active Substance: CANDESARTAN
     Dosage: 32 MILLIGRAM, QD
     Route: 065
  50. CANDESARTAN [Concomitant]
     Active Substance: CANDESARTAN
     Dosage: 32 MILLIGRAM, QD
  51. CANDESARTAN [Concomitant]
     Active Substance: CANDESARTAN
     Dosage: 32 MILLIGRAM, QD
  52. CANDESARTAN [Concomitant]
     Active Substance: CANDESARTAN
     Dosage: 32 MILLIGRAM, QD
     Route: 065
  53. VALACYCLOVIR [Concomitant]
     Active Substance: VALACYCLOVIR HYDROCHLORIDE
     Indication: Antiviral prophylaxis
     Dosage: UNK
  54. VALACYCLOVIR [Concomitant]
     Active Substance: VALACYCLOVIR HYDROCHLORIDE
     Dosage: UNK
     Route: 065
  55. VALACYCLOVIR [Concomitant]
     Active Substance: VALACYCLOVIR HYDROCHLORIDE
     Dosage: UNK
     Route: 065
  56. VALACYCLOVIR [Concomitant]
     Active Substance: VALACYCLOVIR HYDROCHLORIDE
     Dosage: UNK
  57. ACETAMINOPHEN [Concomitant]
     Active Substance: ACETAMINOPHEN
     Indication: Premedication
     Dosage: UNK
  58. ACETAMINOPHEN [Concomitant]
     Active Substance: ACETAMINOPHEN
     Dosage: UNK
     Route: 065
  59. ACETAMINOPHEN [Concomitant]
     Active Substance: ACETAMINOPHEN
     Dosage: UNK
     Route: 065
  60. ACETAMINOPHEN [Concomitant]
     Active Substance: ACETAMINOPHEN
     Dosage: UNK
  61. HYDROCHLOROTHIAZIDE [Concomitant]
     Active Substance: HYDROCHLOROTHIAZIDE
     Indication: Hypertension
     Dosage: UNK
     Route: 065
  62. HYDROCHLOROTHIAZIDE [Concomitant]
     Active Substance: HYDROCHLOROTHIAZIDE
     Dosage: UNK
  63. HYDROCHLOROTHIAZIDE [Concomitant]
     Active Substance: HYDROCHLOROTHIAZIDE
     Dosage: UNK
  64. HYDROCHLOROTHIAZIDE [Concomitant]
     Active Substance: HYDROCHLOROTHIAZIDE
     Dosage: UNK
     Route: 065
  65. HYDROCHLOROTHIAZIDE [Concomitant]
     Active Substance: HYDROCHLOROTHIAZIDE
     Dosage: 25 MILLIGRAM, QD
     Route: 065
  66. HYDROCHLOROTHIAZIDE [Concomitant]
     Active Substance: HYDROCHLOROTHIAZIDE
     Dosage: 25 MILLIGRAM, QD
  67. HYDROCHLOROTHIAZIDE [Concomitant]
     Active Substance: HYDROCHLOROTHIAZIDE
     Dosage: 25 MILLIGRAM, QD
  68. HYDROCHLOROTHIAZIDE [Concomitant]
     Active Substance: HYDROCHLOROTHIAZIDE
     Dosage: 25 MILLIGRAM, QD
     Route: 065

REACTIONS (7)
  - Infusion related reaction [Unknown]
  - Rhinitis allergic [Unknown]
  - Transplant rejection [Recovering/Resolving]
  - Plasma cell myeloma [Recovering/Resolving]
  - Influenza [Unknown]
  - Pneumonia influenzal [Unknown]
  - Off label use [Unknown]

NARRATIVE: CASE EVENT DATE: 20180601
